FAERS Safety Report 10213477 (Version 1)
Quarter: 2014Q2

REPORT INFORMATION
  Report Type: Spontaneous
  Country: US (occurrence: None)
  Receive Date: 20140530
  Receipt Date: 20140530
  Transmission Date: 20141212
  Serious: Yes (Other)
  Sender: FDA-Public Use
  Company Number: None

PATIENT
  Age: 65 Year
  Sex: Male
  Weight: 98.5 kg

DRUGS (1)
  1. SPIRONOLACTONE [Suspect]
     Dosage: 25 MG, EVERY DAY, PO
     Route: 048
     Dates: start: 20131101, end: 20130109

REACTIONS (2)
  - Hyperkalaemia [None]
  - Haemodialysis [None]
